FAERS Safety Report 17004814 (Version 1)
Quarter: 2019Q4

REPORT INFORMATION
  Report Type: Report from Study
  Country: US (occurrence: US)
  Receive Date: 20191107
  Receipt Date: 20191107
  Transmission Date: 20200122
  Serious: Yes (Hospitalization)
  Sender: FDA-Public Use
  Company Number: US-REGENERON PHARMACEUTICALS, INC.-2019-64023

PATIENT

DRUGS (4)
  1. RADIOTHERAPY [Concomitant]
     Active Substance: RADIATION THERAPY
     Indication: MALIGNANT GLIOMA
     Dosage: UNK, QD
     Dates: start: 20191031, end: 20191101
  2. CEMIPLIMAB [Suspect]
     Active Substance: CEMIPLIMAB
     Indication: MALIGNANT GLIOMA
     Dosage: 3 MG/KG, Q2W
     Route: 042
     Dates: start: 20191101, end: 20191101
  3. KEPPRA [Concomitant]
     Active Substance: LEVETIRACETAM
     Indication: SEIZURE PROPHYLAXIS
     Dosage: 750 MG, BID
     Route: 048
  4. DEXAMETHASONE. [Concomitant]
     Active Substance: DEXAMETHASONE
     Indication: POST PROCEDURAL INFLAMMATION
     Dosage: UNK
     Route: 048
     Dates: end: 20191011

REACTIONS (1)
  - Anaphylactic reaction [Recovering/Resolving]

NARRATIVE: CASE EVENT DATE: 20191101
